FAERS Safety Report 5137444-9 (Version None)
Quarter: 2006Q4

REPORT INFORMATION
  Report Type: 
  Country: None (occurrence: None)
  Receive Date: 20061030
  Receipt Date: 20061025
  Transmission Date: 20070319
  Serious: Yes (Disabling)
  Sender: FDA-Public Use
  Company Number: US-BRISTOL-MYERS SQUIBB COMPANY-13555776

PATIENT
  Age: 56 Year
  Sex: Female
  Weight: 82 kg

DRUGS (6)
  1. CYTOXAN [Suspect]
     Indication: POLYARTERITIS NODOSA
     Dates: start: 20030101, end: 20050101
  2. OS-CAL + D [Concomitant]
  3. BONIVA [Concomitant]
  4. ZIAC [Concomitant]
     Indication: HYPERTENSION
  5. PREDNISONE TAB [Concomitant]
     Dates: start: 20030101
  6. MULTI-VITAMIN [Concomitant]

REACTIONS (1)
  - NERVE INJURY [None]
